FAERS Safety Report 22593562 (Version 1)
Quarter: 2023Q2

REPORT INFORMATION
  Report Type: Spontaneous
  Country: CO (occurrence: CO)
  Receive Date: 20230613
  Receipt Date: 20230613
  Transmission Date: 20230721
  Serious: Yes (Other)
  Sender: FDA-Public Use
  Company Number: CO-BAXTER-2020BAX011902

PATIENT
  Age: 67 Year
  Sex: Female
  Weight: 46 kg

DRUGS (31)
  1. WATER FOR INJECTION [Suspect]
     Active Substance: WATER
     Indication: Medication dilution
     Dosage: IV DEXTROSE IN DISTILLED WATER 10% 20ML PER HOUR
     Route: 042
     Dates: start: 20200513, end: 20200518
  2. DEXTROSE [Suspect]
     Active Substance: DEXTROSE\DEXTROSE MONOHYDRATE
     Indication: Product used for unknown indication
     Dosage: 20 ML ONCE DAILY, DOSAGE TEXT: 20 ML PER HOUR
     Route: 042
     Dates: start: 20200513, end: 20200518
  3. DEXTROSE [Suspect]
     Active Substance: DEXTROSE\DEXTROSE MONOHYDRATE
     Dosage: IN RIGHT UPPER LIMB WITH CATHETER NUMBER 22 WITH INSERTION DATE 12MAY2020, PERMEABLE THROUGH WHICH D
     Route: 042
     Dates: start: 20200515, end: 20200516
  4. DEXTROSE [Suspect]
     Active Substance: DEXTROSE\DEXTROSE MONOHYDRATE
     Dosage: DUE TO PAIN, PLACED ANOTHER IV ACCESS WITH CATHETER 22
     Route: 042
     Dates: start: 20200516, end: 20200516
  5. DEXTROSE [Suspect]
     Active Substance: DEXTROSE\DEXTROSE MONOHYDRATE
     Dosage: RIGHT UPPER LIMB IN RADIAL VEIN WITH CATHETER NUMBER 22 FIXED, INSERTION DATE 16MAY2020,
     Route: 042
     Dates: start: 20200516, end: 20200517
  6. DEXTROSE [Suspect]
     Active Substance: DEXTROSE\DEXTROSE MONOHYDRATE
     Dosage: UPPER LEFT LIMB METACARPAL VEIN WITH CATHETER 24 ADMINISTERING DEXTROSE 10% 20 ML PER HOUR.
     Route: 042
     Dates: start: 20200517, end: 20200518
  7. LACTATED RINGERS SOLUTION [Suspect]
     Active Substance: CALCIUM CHLORIDE\POTASSIUM CHLORIDE\SODIUM CHLORIDE\SODIUM LACTATE
     Dosage: 130 ML ONCE DAILY, DOSAGE TEXT: 60 ML PER HOUR
     Route: 042
     Dates: start: 20200515, end: 20200518
  8. LACTATED RINGERS SOLUTION [Suspect]
     Active Substance: CALCIUM CHLORIDE\POTASSIUM CHLORIDE\SODIUM CHLORIDE\SODIUM LACTATE
     Dosage: 75 ML ONCE DAILY, DOSAGE TEXT: ML PER HOUR
     Route: 042
     Dates: start: 20200519, end: 20200520
  9. LACTATED RINGERS SOLUTION [Suspect]
     Active Substance: CALCIUM CHLORIDE\POTASSIUM CHLORIDE\SODIUM CHLORIDE\SODIUM LACTATE
     Dosage: 60 ML ONCE DAILY, REPLACED ANOTHER VEIN ACCESS AGAIN WITH CATHETER NUMBER 24, A RINGER LACTATE WAS A
     Route: 042
     Dates: start: 20200520, end: 20200521
  10. LACTATED RINGERS SOLUTION [Suspect]
     Active Substance: CALCIUM CHLORIDE\POTASSIUM CHLORIDE\SODIUM CHLORIDE\SODIUM LACTATE
     Dosage: IN THE LEFT UPPER LIMB WITH CATHETER NUMBER 22 WITH INSERTION DATE 15MAY2020, PASSING LACTATED RINGE
     Route: 042
     Dates: start: 20200515, end: 20200516
  11. LACTATED RINGERS SOLUTION [Suspect]
     Active Substance: CALCIUM CHLORIDE\POTASSIUM CHLORIDE\SODIUM CHLORIDE\SODIUM LACTATE
     Dosage: UPPER LEFT LIMB IN METACARPAL WITH CATHETER NUMBER 22 INSERTION DATE 15MAY2020 FIXED
     Route: 042
     Dates: start: 20200516, end: 20200517
  12. LACTATED RINGERS SOLUTION [Suspect]
     Active Substance: CALCIUM CHLORIDE\POTASSIUM CHLORIDE\SODIUM CHLORIDE\SODIUM LACTATE
     Dosage: UPPER RIGHT LIMB CEPHALIC VEIN WITH CATHETER 24 ADMINISTERING LACTATED RINGERS 130 ML PER HOUR
     Route: 042
     Dates: start: 20200517, end: 20200520
  13. SODIUM CHLORIDE [Suspect]
     Active Substance: SODIUM CHLORIDE
     Indication: Product used for unknown indication
     Dosage: 1000 ML, PASSING A BOLUS
     Route: 040
     Dates: start: 20200514, end: 20200521
  14. OLIMEL E [Suspect]
     Active Substance: AMINO ACIDS\DEXTROSE\ELECTROLYTES NOS\SOYBEAN OIL
     Indication: Parenteral nutrition
     Dosage: 65.5 ML ONCE DAILY, ADMINISTRATED BY PERIPHERAL ROUTE, DOSAGE TEXT: 65.5 ML/H
     Route: 042
     Dates: start: 20200518, end: 20200519
  15. OLIMEL E [Suspect]
     Active Substance: AMINO ACIDS\DEXTROSE\ELECTROLYTES NOS\SOYBEAN OIL
     Dosage: PARENTERAL NUTRITION WAS STARTED THROUGH THE PERIPHERAL VEIN OF THE LEFT UPPER LIMB (VENOUS ACCESS I
     Route: 042
     Dates: start: 20200518, end: 20200519
  16. OLIMEL E [Suspect]
     Active Substance: AMINO ACIDS\DEXTROSE\ELECTROLYTES NOS\SOYBEAN OIL
     Dosage: IN UPPER LEFT LIMB WITH CATHETER NUMBER 22 CEPHALIC VEIN AND PARENTERAL NUTRITION WAS ADMINISTERING
     Route: 042
     Dates: start: 20200519, end: 20200521
  17. OLIMEL E [Suspect]
     Active Substance: AMINO ACIDS\DEXTROSE\ELECTROLYTES NOS\SOYBEAN OIL
     Dosage: VEIN ACCESS WAS PLACED WITH CATHETER NUMBER 22 IN UPPER RIGHT LIMB, PARENTERAL NUTRITION WAS LEFT TH
     Route: 042
     Dates: start: 20200521, end: 20200521
  18. METOCLOPRAMIDE [Suspect]
     Active Substance: METOCLOPRAMIDE
     Indication: Product used for unknown indication
     Dosage: 10 MG SINGLE DOSE
     Route: 042
     Dates: start: 20200511
  19. METOCLOPRAMIDE [Suspect]
     Active Substance: METOCLOPRAMIDE
     Dosage: 10 MG EVERY 8 HOURS
     Route: 042
     Dates: start: 20200512, end: 20200521
  20. BUTYLSCOPOLAMINE BROMIDE [Suspect]
     Active Substance: BUTYLSCOPOLAMINE BROMIDE
     Indication: Product used for unknown indication
     Dosage: 20 MG SINGLE DOSE
     Route: 042
     Dates: start: 20200511
  21. DICLOFENAC [Suspect]
     Active Substance: DICLOFENAC
     Indication: Pain management
     Dosage: 75 MG SINGLE DOSE
     Route: 042
     Dates: start: 20200511
  22. DICLOFENAC [Suspect]
     Active Substance: DICLOFENAC
     Dosage: 75 MG EVERY 12 HOURS
     Route: 042
     Dates: start: 20200512, end: 20200515
  23. DICLOFENAC [Suspect]
     Active Substance: DICLOFENAC
     Dosage: 75 MG EVERY 8 HOURS
     Route: 042
     Dates: start: 20200515, end: 20200521
  24. LEVOTHYROXINE [Suspect]
     Active Substance: LEVOTHYROXINE
     Indication: Product used for unknown indication
     Dosage: 100 MCG EVERY 24 HOURS, PER DAY
     Route: 048
     Dates: start: 20200512, end: 20200521
  25. RANITIDINE [Suspect]
     Active Substance: RANITIDINE
     Indication: Product used for unknown indication
     Dosage: 50 MG, EVERY 8 HOURS
     Route: 042
     Dates: start: 20200512, end: 20200521
  26. ENOXAPARIN [Suspect]
     Active Substance: ENOXAPARIN
     Indication: Product used for unknown indication
     Dosage: 40 MG PER DAY
     Route: 065
     Dates: start: 20200513, end: 20200521
  27. ACETAMINOPHEN [Suspect]
     Active Substance: ACETAMINOPHEN
     Indication: Pain management
     Dosage: UNK
     Route: 065
     Dates: start: 20200514, end: 20200521
  28. HYDROMORPHONE [Suspect]
     Active Substance: HYDROMORPHONE
     Indication: Pain management
     Dosage: 0.4 MG EVERY 8 HOURS
     Route: 042
     Dates: start: 20200514, end: 20200514
  29. CLINDAMYCIN [Suspect]
     Active Substance: CLINDAMYCIN
     Indication: Product used for unknown indication
     Dosage: 600 MG EVERY 6 HOURS
     Route: 042
     Dates: start: 20200514, end: 20200516
  30. AMIKACIN [Suspect]
     Active Substance: AMIKACIN
     Indication: Product used for unknown indication
     Dosage: 1000 MG EVERY 12 HOURS
     Route: 042
     Dates: start: 20200514, end: 20200516
  31. GLUTAMINE [Suspect]
     Active Substance: GLUTAMINE
     Indication: Product used for unknown indication
     Dosage: UNK
     Route: 065
     Dates: start: 20200517, end: 20200521

REACTIONS (9)
  - Loss of consciousness [Unknown]
  - Oxygen saturation decreased [Unknown]
  - Disorientation [Recovered/Resolved]
  - Pain in extremity [Unknown]
  - Infusion site extravasation [Unknown]
  - Blood pressure decreased [Unknown]
  - Infusion site erythema [Unknown]
  - Infusion site pain [Unknown]
  - Infusion site phlebitis [Recovered/Resolved]

NARRATIVE: CASE EVENT DATE: 20200514
